APPROVED DRUG PRODUCT: ISOPROTERENOL HYDROCHLORIDE
Active Ingredient: ISOPROTERENOL HYDROCHLORIDE
Strength: 0.2MG/ML
Dosage Form/Route: INJECTABLE;INJECTION
Application: A213305 | Product #001 | TE Code: AP
Applicant: DEVA HOLDING AS
Approved: Dec 10, 2025 | RLD: No | RS: No | Type: RX